FAERS Safety Report 20855014 (Version 1)
Quarter: 2022Q2

REPORT INFORMATION
  Report Type: Spontaneous
  Country: US (occurrence: US)
  Receive Date: 20220520
  Receipt Date: 20220520
  Transmission Date: 20220721
  Serious: No
  Sender: FDA-Public Use
  Company Number: ae011US22

PATIENT
  Sex: Female

DRUGS (2)
  1. ASCLERA [Suspect]
     Active Substance: POLIDOCANOL
     Indication: Product used for unknown indication
     Dosage: 3 VIALS
     Route: 065
     Dates: start: 20220321, end: 20220321
  2. UNSPECIFIED INGREDIENT [Concomitant]
     Active Substance: UNSPECIFIED INGREDIENT
     Indication: Infection
     Route: 065
     Dates: start: 20220408

REACTIONS (3)
  - Injection site scab [Recovering/Resolving]
  - Injection site erythema [Recovering/Resolving]
  - Injection site infection [Recovering/Resolving]
